FAERS Safety Report 13550455 (Version 1)
Quarter: 2017Q2

REPORT INFORMATION
  Report Type: Spontaneous
  Country: US (occurrence: US)
  Receive Date: 20170516
  Receipt Date: 20170516
  Transmission Date: 20170830
  Serious: Yes (Hospitalization)
  Sender: FDA-Public Use
  Company Number: None

PATIENT
  Age: 88 Year
  Sex: Female
  Weight: 68.3 kg

DRUGS (12)
  1. HUMULIN 70/30 [Suspect]
     Active Substance: INSULIN HUMAN
     Indication: DIABETES MELLITUS
     Dosage: 20 UNITS QAM SQ 50 UNITS QPM SQ
  2. COREG [Concomitant]
     Active Substance: CARVEDILOL
  3. NORCO [Suspect]
     Active Substance: ACETAMINOPHEN\HYDROCODONE BITARTRATE
     Indication: ARTHRALGIA
     Dosage: CHRONIC 5/325MG X 1 Q6HRS PRN PO
     Route: 048
  4. ASA [Concomitant]
     Active Substance: ASPIRIN
  5. PRAVACOL [Concomitant]
     Active Substance: PRAVASTATIN SODIUM
  6. GABAPENTIN 100MG PO BID [Suspect]
     Active Substance: GABAPENTIN
     Dosage: CHRONIC 20UNITS QAM SQ?5UNITS QPM SQ
     Route: 048
  7. FLEXERIL [Suspect]
     Active Substance: CYCLOBENZAPRINE HYDROCHLORIDE
     Dosage: NIGHTLY AS NEEDED
     Route: 048
  8. RENVELA [Concomitant]
     Active Substance: SEVELAMER CARBONATE
  9. NORCO [Suspect]
     Active Substance: ACETAMINOPHEN\HYDROCODONE BITARTRATE
     Indication: OSTEOARTHRITIS
     Dosage: CHRONIC 5/325MG X 1 Q6HRS PRN PO
     Route: 048
  10. VOLTAREN [Concomitant]
     Active Substance: DICLOFENAC SODIUM
  11. IMDUR [Concomitant]
     Active Substance: ISOSORBIDE MONONITRATE
  12. PRILOSEC [Concomitant]
     Active Substance: OMEPRAZOLE MAGNESIUM

REACTIONS (3)
  - Mental status changes [None]
  - Encephalopathy [None]
  - Hypoglycaemia [None]

NARRATIVE: CASE EVENT DATE: 20170406
